FAERS Safety Report 25859016 (Version 3)
Quarter: 2025Q4

REPORT INFORMATION
  Report Type: Spontaneous
  Country: EU (occurrence: EU)
  Receive Date: 20250929
  Receipt Date: 20251022
  Transmission Date: 20260118
  Serious: Yes (Other)
  Sender: ROCHE
  Company Number: EU-ROCHE-10000393019

PATIENT
  Age: 79 Year
  Sex: Female

DRUGS (6)
  1. AVASTIN [Suspect]
     Active Substance: BEVACIZUMAB
     Indication: Colorectal cancer
     Route: 065
  2. CAPECITABINE [Suspect]
     Active Substance: CAPECITABINE
     Indication: Colorectal cancer
     Route: 048
     Dates: start: 202411
  3. OXALIPLATIN [Concomitant]
     Active Substance: OXALIPLATIN
     Indication: Colorectal cancer
  4. IRINOTECAN [Concomitant]
     Active Substance: IRINOTECAN
     Indication: Colorectal cancer
  5. LONSURF [Concomitant]
     Active Substance: TIPIRACIL HYDROCHLORIDE\TRIFLURIDINE
     Indication: Colorectal cancer
  6. HYDREA [Concomitant]
     Active Substance: HYDROXYUREA
     Indication: Colorectal cancer

REACTIONS (5)
  - Disease progression [Unknown]
  - Bronchitis [Recovered/Resolved]
  - K-ras gene mutation [Unknown]
  - Metastases to liver [Unknown]
  - Metastases to lung [Unknown]

NARRATIVE: CASE EVENT DATE: 20250101
